FAERS Safety Report 7959377-2 (Version None)
Quarter: 2011Q4

REPORT INFORMATION
  Report Type: 
  Country: None (occurrence: None)
  Receive Date: 20111206
  Receipt Date: 20111201
  Transmission Date: 20120403
  Serious: Yes (Other)
  Sender: FDA-Public Use
  Company Number: IE-PFIZER INC-2011294136

PATIENT
  Age: 51 Year
  Sex: Male

DRUGS (13)
  1. PARACETAMOL [Concomitant]
     Dosage: 1 G, 4X/DAY
     Dates: start: 20110910, end: 20110921
  2. PIPERACILLIN AND TAZOBACTAM [Suspect]
     Indication: ANTIBIOTIC THERAPY
     Dosage: 4.5 G, 3X/DAY
     Route: 042
     Dates: start: 20110826, end: 20110911
  3. FLAGYL [Concomitant]
     Indication: DIVERTICULITIS
     Dosage: 500 MG, 3X/DAY
     Dates: start: 20110826, end: 20110912
  4. BISOPROLOL [Concomitant]
     Dosage: 2.5 MG, 1X/DAY
  5. GENTAMICIN [Concomitant]
     Dosage: 240 MG, UNK
     Dates: start: 20110909, end: 20110912
  6. RANEXA [Concomitant]
     Indication: MYOCARDIAL ISCHAEMIA
     Dosage: 375 MG, 2X/DAY
  7. ACETYLSALICYLIC ACID [Concomitant]
     Indication: MYOCARDIAL ISCHAEMIA
     Dosage: 75 MG, 1X/DAY
  8. GLUCOPHAGE [Concomitant]
     Indication: DIABETES MELLITUS
     Dosage: 850 MG, 2X/DAY
  9. FUROSEMIDE [Concomitant]
     Dosage: 40 MG, UNK
  10. PERINDOPRIL ERBUMINE [Concomitant]
     Indication: HYPERTENSION
     Dosage: 5 MG, 1X/DAY
  11. GLYCERYL TRINITRATE [Concomitant]
     Dosage: 5 MG, CYCLIC, 12 HOURS ON, 12 HOURS OFF
     Dates: start: 20110911, end: 20110922
  12. LIPITOR [Concomitant]
     Indication: HYPERCHOLESTEROLAEMIA
     Dosage: 80 MG, 1X/DAY
  13. PLAVIX [Concomitant]
     Indication: MYOCARDIAL ISCHAEMIA
     Dosage: 75 MG, 1X/DAY

REACTIONS (6)
  - BURNING SENSATION [None]
  - FEELING HOT [None]
  - OROPHARYNGEAL PAIN [None]
  - FLUSHING [None]
  - CHEST PAIN [None]
  - ERYTHEMA [None]
